FAERS Safety Report 8774337 (Version 1)
Quarter: 2012Q4

REPORT INFORMATION
  Report Type: 
  Country: US (occurrence: US)
  Receive Date: 20120907
  Receipt Date: 20120907
  Transmission Date: 20130627
  Serious: Yes (Hospitalization, Disabling, Other)
  Sender: FDA-Public Use
  Company Number: US-ELI_LILLY_AND_COMPANY-US201209000306

PATIENT
  Sex: Male

DRUGS (3)
  1. HUMULIN REGULAR [Suspect]
     Dosage: UNK, unknown
  2. HUMULIN 30% REGULAR, 70% NPH [Suspect]
     Dosage: UNK, unknown
  3. LANTUS [Concomitant]

REACTIONS (3)
  - Hospitalisation [Unknown]
  - Blindness [Not Recovered/Not Resolved]
  - Blood glucose increased [Unknown]
